FAERS Safety Report 10064644 (Version 1)
Quarter: 2014Q2

REPORT INFORMATION
  Report Type: Spontaneous
  Country: US (occurrence: None)
  Receive Date: 20140407
  Receipt Date: 20140407
  Transmission Date: 20141212
  Serious: Yes (Hospitalization)
  Sender: FDA-Public Use
  Company Number: None

PATIENT
  Age: 47 Year
  Sex: Female
  Weight: 52.16 kg

DRUGS (2)
  1. HYDROMORPHONE [Suspect]
     Indication: PAIN
  2. HYDROMORPHONE [Suspect]
     Indication: SPINAL CORD NEOPLASM

REACTIONS (3)
  - Pneumonia [None]
  - Pneumothorax [None]
  - Product substitution issue [None]
